FAERS Safety Report 10566472 (Version 1)
Quarter: 2014Q4

REPORT INFORMATION
  Report Type: Spontaneous
  Country: US (occurrence: US)
  Receive Date: 20141105
  Receipt Date: 20141105
  Transmission Date: 20150529
  Serious: Yes (Other)
  Sender: FDA-Public Use
  Company Number: US-ABBVIE-14P-163-1300605-00

PATIENT
  Sex: Female

DRUGS (2)
  1. DILAUDID [Concomitant]
     Active Substance: HYDROMORPHONE HYDROCHLORIDE
     Indication: PRODUCT USED FOR UNKNOWN INDICATION
     Route: 065
  2. HUMIRA [Suspect]
     Active Substance: ADALIMUMAB
     Indication: CROHN^S DISEASE
     Route: 058
     Dates: start: 2013, end: 201407

REACTIONS (5)
  - Gastric cancer [Not Recovered/Not Resolved]
  - Renal failure [Not Recovered/Not Resolved]
  - Pelvic fracture [Recovering/Resolving]
  - Fall [Recovering/Resolving]
  - Bladder cancer [Not Recovered/Not Resolved]
